FAERS Safety Report 20050092 (Version 2)
Quarter: 2021Q4

REPORT INFORMATION
  Report Type: Spontaneous
  Country: US (occurrence: US)
  Receive Date: 20211109
  Receipt Date: 20211125
  Transmission Date: 20220303
  Serious: No
  Sender: FDA-Public Use
  Company Number: US-009507513-2111USA002285

PATIENT
  Sex: Male

DRUGS (1)
  1. TEMODAR [Suspect]
     Active Substance: TEMOZOLOMIDE
     Indication: Neoplasm malignant
     Dosage: 5 DAYS A MONTH
     Dates: start: 202105

REACTIONS (1)
  - Inappropriate schedule of product administration [Unknown]
